FAERS Safety Report 4470490-7 (Version None)
Quarter: 2004Q4

REPORT INFORMATION
  Report Type: 
  Country: None (occurrence: None)
  Receive Date: 20041005
  Receipt Date: 20040927
  Transmission Date: 20050328
  Serious: Yes (Hospitalization, Other)
  Sender: FDA-Public Use
  Company Number: KII-2004-0013473

PATIENT
  Age: 53 Year
  Sex: Female

DRUGS (4)
  1. OXYCONTIN [Suspect]
     Dosage: ORAL
     Route: 048
  2. BENZODIAZEPINES DERIVATIVES() [Suspect]
     Dosage: ORAL
     Route: 048
  3. SSRI() [Suspect]
     Dosage: ORAL
     Route: 048
  4. MALATHION [Suspect]
     Dosage: ORAL
     Route: 048

REACTIONS (27)
  - ALANINE AMINOTRANSFERASE INCREASED [None]
  - ANGER [None]
  - APNOEA [None]
  - ASPARTATE AMINOTRANSFERASE INCREASED [None]
  - BLOOD AMYLASE INCREASED [None]
  - BLOOD CREATININE INCREASED [None]
  - BLOOD POTASSIUM DECREASED [None]
  - BLOOD PRESSURE SYSTOLIC INCREASED [None]
  - BLOOD UREA INCREASED [None]
  - BODY TEMPERATURE INCREASED [None]
  - BRADYCARDIA [None]
  - DEPRESSED LEVEL OF CONSCIOUSNESS [None]
  - DIARRHOEA [None]
  - ELECTROCARDIOGRAM ABNORMAL [None]
  - FEELING COLD [None]
  - HYPOPERFUSION [None]
  - HYPOTENSION [None]
  - ISCHAEMIA [None]
  - LACRIMATION INCREASED [None]
  - LETHARGY [None]
  - MULTIPLE DRUG OVERDOSE [None]
  - POLYURIA [None]
  - RESPIRATION ABNORMAL [None]
  - RHABDOMYOLYSIS [None]
  - SINUS TACHYCARDIA [None]
  - THERAPY NON-RESPONDER [None]
  - TROPONIN INCREASED [None]
